FAERS Safety Report 24081434 (Version 3)
Quarter: 2024Q4

REPORT INFORMATION
  Report Type: Spontaneous
  Country: US (occurrence: US)
  Receive Date: 20240712
  Receipt Date: 20241016
  Transmission Date: 20250114
  Serious: Yes (Other)
  Sender: SANOFI AVENTIS
  Company Number: US-SA-SAC20240709000478

PATIENT
  Age: 22 Year
  Sex: Female

DRUGS (1)
  1. DUPIXENT [Suspect]
     Active Substance: DUPILUMAB
     Indication: Dermatitis atopic
     Dosage: 300 MG, QOW
     Route: 058
     Dates: start: 20240620

REACTIONS (7)
  - Chronic cutaneous lupus erythematosus [Unknown]
  - Blister [Unknown]
  - Pain [Unknown]
  - Pyrexia [Unknown]
  - Dry skin [Unknown]
  - Pruritus [Unknown]
  - Therapeutic response unexpected [Unknown]
